FAERS Safety Report 4964063-7 (Version None)
Quarter: 2006Q1

REPORT INFORMATION
  Report Type: 
  Country: None (occurrence: None)
  Receive Date: 20060330
  Receipt Date: 20060321
  Transmission Date: 20060701
  Serious: Yes (Other)
  Sender: FDA-Public Use
  Company Number: HQWYE464922MAR06

PATIENT
  Age: 39 Year
  Sex: Female

DRUGS (1)
  1. ADVIL [Suspect]
     Dosage: 400 MG, ONE DOSE, ORAL
     Route: 048
     Dates: start: 20060117, end: 20060117

REACTIONS (3)
  - BURNING SENSATION [None]
  - DYSPNOEA [None]
  - PRURITUS GENERALISED [None]
